FAERS Safety Report 4348629-3 (Version None)
Quarter: 2004Q2

REPORT INFORMATION
  Report Type: 
  Country: None (occurrence: None)
  Receive Date: 20040423
  Receipt Date: 20040405
  Transmission Date: 20050107
  Serious: Yes (Life-Threatening, Hospitalization)
  Sender: FDA-Public Use
  Company Number: 2004SE01658

PATIENT
  Age: 53 Year
  Sex: Female

DRUGS (2)
  1. ESOMEPRAZOLE [Suspect]
     Dosage: 40 MG DAILY PO
     Route: 048
     Dates: start: 20040227, end: 20040301
  2. DEURISL [Concomitant]

REACTIONS (1)
  - LARYNGEAL OEDEMA [None]
